FAERS Safety Report 5193980-0 (Version None)
Quarter: 2006Q4

REPORT INFORMATION
  Report Type: 
  Country: None (occurrence: None)
  Receive Date: 20061228
  Receipt Date: 20060824
  Transmission Date: 20070319
  Serious: No
  Sender: FDA-Public Use
  Company Number: US-GLAXOSMITHKLINE-A0618094A

PATIENT
  Age: 77 Year
  Sex: Female

DRUGS (1)
  1. FLOVENT [Suspect]
     Indication: DRUG USE FOR UNKNOWN INDICATION
     Route: 055

REACTIONS (6)
  - ADVERSE EVENT [None]
  - DYSPHAGIA [None]
  - DYSPNOEA [None]
  - FEAR [None]
  - PAIN [None]
  - THROAT IRRITATION [None]
